FAERS Safety Report 7122095-7 (Version None)
Quarter: 2010Q4

REPORT INFORMATION
  Report Type: 
  Country: None (occurrence: None)
  Receive Date: 20101124
  Receipt Date: 20101112
  Transmission Date: 20110411
  Serious: Yes (Hospitalization, Other)
  Sender: FDA-Public Use
  Company Number: JP-SHIRE-SPV1-2010-00629

PATIENT

DRUGS (16)
  1. LANTHANUM CARBONATE [Suspect]
     Indication: HYPERPHOSPHATAEMIA
     Dosage: 500 MG, 1X/DAY:QD
     Route: 048
     Dates: start: 20090930, end: 20100331
  2. LANTHANUM CARBONATE [Suspect]
     Dosage: 500 MG, 1X/DAY:QD
     Dates: start: 20100410
  3. CORINAE L [Concomitant]
     Dosage: 60 MG, UNKNOWN
     Route: 048
  4. DEPAS [Concomitant]
     Dosage: 1 MG, UNKNOWN
     Route: 048
  5. VEGETAMIN B [Concomitant]
     Dosage: 1 DF, UNKNOWN
     Route: 048
  6. FERROMIA                           /00023516/ [Concomitant]
     Dosage: 50 MG, UNKNOWN
     Route: 048
  7. COMESGEN [Concomitant]
     Dosage: 500 UG, UNKNOWN
     Route: 048
  8. PAXIL [Concomitant]
     Dosage: 100 MG, UNKNOWN
     Route: 048
  9. ARTIST [Concomitant]
     Dosage: 5 MG, UNKNOWN
     Route: 048
  10. PLETAL [Concomitant]
     Dosage: 100 MG, UNKNOWN
     Route: 048
  11. TAKEPRON [Concomitant]
     Dosage: 30 MG, UNKNOWN
     Route: 048
  12. YODEL [Concomitant]
     Dosage: 320 MG, UNKNOWN
     Route: 048
  13. DOXAZOSIN MESYLATE [Concomitant]
     Dosage: 2 MG, UNKNOWN
     Route: 048
  14. FRANDOL [Concomitant]
     Dosage: 1 DF, UNKNOWN
     Route: 062
  15. LIPLE [Concomitant]
     Dosage: 10 UG, UNKNOWN
     Route: 042
  16. NESP [Concomitant]
     Dosage: 30 UG, UNKNOWN
     Route: 042

REACTIONS (3)
  - BLOOD ALKALINE PHOSPHATASE INCREASED [None]
  - ILEUS [None]
  - WRONG TECHNIQUE IN DRUG USAGE PROCESS [None]
